FAERS Safety Report 9223714 (Version 1)
Quarter: 2013Q2

REPORT INFORMATION
  Report Type: Report from Study
  Country: DE (occurrence: DE)
  Receive Date: 20130410
  Receipt Date: 20130410
  Transmission Date: 20140414
  Serious: Yes (Other)
  Sender: FDA-Public Use
  Company Number: GXKR2013DE001409

PATIENT
  Sex: Female
  Weight: 28 kg

DRUGS (2)
  1. SOMATROPIN [Suspect]
     Indication: GROWTH HORMONE DEFICIENCY
     Dosage: 0.7 MG, QD
     Dates: start: 20121217
  2. SOMATROPIN [Suspect]
     Dosage: 0.8 MG, UNK
     Dates: start: 20130320

REACTIONS (3)
  - Autoimmune thyroiditis [Unknown]
  - Primary hypothyroidism [Unknown]
  - Anti-thyroid antibody positive [Unknown]
